FAERS Safety Report 7650052-0 (Version None)
Quarter: 2011Q3

REPORT INFORMATION
  Report Type: 
  Country: None (occurrence: None)
  Receive Date: 20110802
  Receipt Date: 20110802
  Transmission Date: 20111222
  Serious: Yes (Other)
  Sender: FDA-Public Use
  Company Number: None

PATIENT
  Age: 9 Year
  Sex: Male
  Weight: 32.658 kg

DRUGS (2)
  1. INTUNIV [Suspect]
     Indication: ATTENTION DEFICIT/HYPERACTIVITY DISORDER
     Dosage: 1MG
     Route: 048
     Dates: start: 20110728, end: 20110801
  2. INTUNIV [Suspect]
     Indication: TOURETTE'S DISORDER
     Dosage: 1MG
     Route: 048
     Dates: start: 20110728, end: 20110801

REACTIONS (3)
  - ENURESIS [None]
  - ACTIVITIES OF DAILY LIVING IMPAIRED [None]
  - INCONTINENCE [None]
